FAERS Safety Report 22340107 (Version 1)
Quarter: 2023Q2

REPORT INFORMATION
  Report Type: Spontaneous
  Country: US (occurrence: US)
  Receive Date: 20230518
  Receipt Date: 20230518
  Transmission Date: 20230722
  Serious: No
  Sender: FDA-Public Use
  Company Number: US-BAYER-2023A056108

PATIENT
  Age: 43 Year
  Sex: Female

DRUGS (9)
  1. CLARITIN [Suspect]
     Active Substance: LORATADINE
     Indication: Infusion site pain
     Dosage: UNK
  2. REMODULIN [Suspect]
     Active Substance: TREPROSTINIL
     Indication: Pulmonary arterial hypertension
     Dosage: 0.029 ?G/KG
     Route: 058
  3. TADALAFIL [Suspect]
     Active Substance: TADALAFIL
  4. OPSUMIT [Suspect]
     Active Substance: MACITENTAN
  5. DIPHENHYDRAMINE HYDROCHLORIDE [Suspect]
     Active Substance: DIPHENHYDRAMINE HYDROCHLORIDE
     Indication: Infusion site rash
     Dosage: UNK
  6. TRIAMCINOLONE [Suspect]
     Active Substance: TRIAMCINOLONE
  7. LIDOCAINE [Suspect]
     Active Substance: LIDOCAINE
     Indication: Infusion site pain
  8. ALOE VERA LEAF [Suspect]
     Active Substance: ALOE VERA LEAF
  9. PRILOCAINE [Suspect]
     Active Substance: PRILOCAINE
     Indication: Infusion site pain

REACTIONS (1)
  - Drug ineffective for unapproved indication [None]

NARRATIVE: CASE EVENT DATE: 20230301
